FAERS Safety Report 8893989 (Version 1)
Quarter: 2012Q4

REPORT INFORMATION
  Report Type: 
  Country: US (occurrence: US)
  Receive Date: 20121108
  Receipt Date: 20121108
  Transmission Date: 20130627
  Serious: Yes (Hospitalization, Other)
  Sender: FDA-Public Use
  Company Number: US-RANBAXY-2012US-61690

PATIENT
  Age: 89 Year
  Sex: Male

DRUGS (3)
  1. PIPERACILLIN SODIUM\TAZOBACTAM SODIUM [Suspect]
     Indication: APPENDICITIS PERFORATED
     Dosage: UNK
     Route: 042
  2. AMOXICILLIN/CLAVULANIC ACID [Suspect]
     Indication: APPENDICITIS PERFORATED
     Dosage: UNK
     Route: 048
  3. NITROFURANTOIN [Suspect]
     Indication: APPENDICITIS PERFORATED
     Dosage: UNK
     Route: 048

REACTIONS (4)
  - Diarrhoea [Recovered/Resolved]
  - Malaise [Unknown]
  - Decreased appetite [Unknown]
  - Weight decreased [Unknown]
